FAERS Safety Report 26048259 (Version 1)
Quarter: 2025Q4

REPORT INFORMATION
  Report Type: Spontaneous
  Country: BR (occurrence: BR)
  Receive Date: 20251114
  Receipt Date: 20251114
  Transmission Date: 20260118
  Serious: Yes (Other)
  Sender: BIOMARIN
  Company Number: BR-BIOMARINAP-BR-2025-170015

PATIENT
  Age: 35 Year
  Sex: Female

DRUGS (1)
  1. NAGLAZYME [Suspect]
     Active Substance: GALSULFASE
     Indication: Mucopolysaccharidosis VI

REACTIONS (3)
  - Blindness [Unknown]
  - Visual impairment [Unknown]
  - Gait inability [Unknown]
